FAERS Safety Report 11819526 (Version 1)
Quarter: 2015Q4

REPORT INFORMATION
  Report Type: Spontaneous
  Country: US (occurrence: None)
  Receive Date: 20151209
  Receipt Date: 20151209
  Transmission Date: 20160305
  Serious: No
  Sender: FDA-Public Use
  Company Number: None

PATIENT
  Sex: Female
  Weight: 62.6 kg

DRUGS (8)
  1. PROPONALAL HCL [Concomitant]
  2. CETIRIZINE HCL [Concomitant]
     Active Substance: CETIRIZINE HYDROCHLORIDE
  3. NEXIUM [Concomitant]
     Active Substance: ESOMEPRAZOLE MAGNESIUM
  4. CHLORDIAZEPOXIDE HCL 10 MG [Suspect]
     Active Substance: CHLORDIAZEPOXIDE HYDROCHLORIDE
     Indication: ANXIETY
     Route: 048
     Dates: start: 20151015, end: 20151020
  5. PRISTIQUE [Concomitant]
  6. CHLORDIAZEPOXIDE HCL 10 MG [Suspect]
     Active Substance: CHLORDIAZEPOXIDE HYDROCHLORIDE
     Indication: NERVOUSNESS
     Route: 048
     Dates: start: 20151015, end: 20151020
  7. CHLORDIAZEPOXIDE HCL 10 MG [Suspect]
     Active Substance: CHLORDIAZEPOXIDE HYDROCHLORIDE
     Indication: POST-TRAUMATIC STRESS DISORDER
     Route: 048
     Dates: start: 20151015, end: 20151020
  8. QUETIAPINE FUMARATE. [Concomitant]
     Active Substance: QUETIAPINE FUMARATE

REACTIONS (8)
  - Pruritus [None]
  - Balance disorder [None]
  - Emotional disorder [None]
  - Somnolence [None]
  - Dysphonia [None]
  - Anhedonia [None]
  - Fatigue [None]
  - Asthenia [None]
